FAERS Safety Report 8394411-X (Version None)
Quarter: 2012Q2

REPORT INFORMATION
  Report Type: 
  Country: None (occurrence: None)
  Receive Date: 20120530
  Receipt Date: 20120523
  Transmission Date: 20120825
  Serious: Yes (Hospitalization, Other)
  Sender: FDA-Public Use
  Company Number: PHEH2012US001156

PATIENT
  Sex: Female
  Weight: 44.8 kg

DRUGS (5)
  1. LEXAPRO [Concomitant]
     Indication: ANXIETY
     Dosage: 20 MG, UNK
     Route: 048
     Dates: start: 20111207, end: 20120301
  2. AFINITOR [Suspect]
     Indication: ASTROCYTOMA, LOW GRADE
     Dosage: 5 MG, QD
     Route: 048
  3. KEPPRA [Concomitant]
     Indication: CONVULSION
     Dosage: 1 DF, QD
     Route: 048
     Dates: start: 20100704
  4. AFINITOR [Suspect]
     Dosage: 7.5 MG, DAILY
     Route: 048
     Dates: start: 20120119, end: 20120425
  5. AFINITOR [Suspect]
     Indication: TUBEROUS SCLEROSIS
     Dosage: 5 MG, QD
     Route: 048
     Dates: start: 20120101

REACTIONS (32)
  - PNEUMONIA [None]
  - PHARYNGITIS STREPTOCOCCAL [None]
  - DEHYDRATION [None]
  - MICTURITION DISORDER [None]
  - BRAIN NEOPLASM [None]
  - STOMATITIS [None]
  - ASTHENIA [None]
  - VOMITING [None]
  - HEPATOSPLENOMEGALY [None]
  - COUGH [None]
  - ILEUS [None]
  - RALES [None]
  - HYPOKALAEMIA [None]
  - HILAR LYMPHADENOPATHY [None]
  - SKIN LESION [None]
  - INFECTION [None]
  - LUNG INFILTRATION [None]
  - LUNG NEOPLASM [None]
  - BRONCHITIS CHRONIC [None]
  - NASOPHARYNGITIS [None]
  - MULTIFOCAL MICRONODULAR PNEUMOCYTE HYPERPLASIA [None]
  - RASH [None]
  - NASAL CONGESTION [None]
  - PLEURAL EFFUSION [None]
  - BRONCHIAL WALL THICKENING [None]
  - RHONCHI [None]
  - NAUSEA [None]
  - MOUTH ULCERATION [None]
  - PYREXIA [None]
  - PNEUMONIA STREPTOCOCCAL [None]
  - SINUSITIS [None]
  - DRUG LEVEL DECREASED [None]
